FAERS Safety Report 26020041 (Version 1)
Quarter: 2025Q4

REPORT INFORMATION
  Report Type: Spontaneous
  Country: US (occurrence: US)
  Receive Date: 20251110
  Receipt Date: 20251110
  Transmission Date: 20260119
  Serious: No
  Sender: GALPHARM INTERNATIONAL
  Company Number: US-PERRIGO-25US004088

PATIENT
  Age: 80 Year
  Sex: Female
  Weight: 118.82 kg

DRUGS (1)
  1. POLYETHYLENE GLYCOL 3350 [Suspect]
     Active Substance: POLYETHYLENE GLYCOL 3350
     Indication: Constipation
     Dosage: 17 G, QD
     Route: 048
     Dates: start: 20250324, end: 20250325

REACTIONS (1)
  - Product preparation issue [Recovered/Resolved]

NARRATIVE: CASE EVENT DATE: 20250324
